FAERS Safety Report 16735482 (Version 1)
Quarter: 2019Q3

REPORT INFORMATION
  Report Type: Report from Study
  Country: FR (occurrence: FR)
  Receive Date: 20190823
  Receipt Date: 20190823
  Transmission Date: 20191005
  Serious: Yes (Death, Life-Threatening, Hospitalization, Other)
  Sender: FDA-Public Use
  Company Number: FR-PFIZER INC-2019358633

PATIENT
  Age: 64 Year
  Sex: Female
  Weight: 72 kg

DRUGS (7)
  1. EXEMESTANE. [Suspect]
     Active Substance: EXEMESTANE
     Indication: BREAST CANCER
     Dosage: 25 MG, 1X/DAY
     Route: 065
     Dates: start: 20151105, end: 20160224
  2. PARACETAMOL [Concomitant]
     Active Substance: ACETAMINOPHEN
     Dosage: 500 MG, PRN (ON DEMAND)
     Route: 065
     Dates: start: 20160414, end: 20160803
  3. AROMASINE [Concomitant]
     Active Substance: EXEMESTANE
     Dosage: 25 MG, QD
     Route: 048
     Dates: start: 20151105, end: 20160803
  4. AFINITOR [Suspect]
     Active Substance: EVEROLIMUS
     Dosage: 5 MG, 1X/DAY
     Route: 048
     Dates: start: 20160309, end: 20160727
  5. EXEMESTANE. [Suspect]
     Active Substance: EXEMESTANE
     Dosage: 25 MG, 1X/DAY
     Route: 065
     Dates: start: 20160309, end: 20160803
  6. LYTOS [Concomitant]
     Active Substance: CLODRONATE DISODIUM
     Dosage: 1040 MG
     Route: 048
     Dates: start: 20110119, end: 20160803
  7. AFINITOR [Suspect]
     Active Substance: EVEROLIMUS
     Indication: BREAST CANCER METASTATIC
     Dosage: 5 MG, 1X/DAY
     Route: 048
     Dates: start: 20151105, end: 20160224

REACTIONS (25)
  - Dyspnoea [Fatal]
  - Hepatic failure [Fatal]
  - Multiple organ dysfunction syndrome [Fatal]
  - Scab [Recovered/Resolved]
  - Epistaxis [Recovered/Resolved]
  - Stomatitis [Recovered/Resolved]
  - Abdominal pain upper [Recovered/Resolved]
  - Peritonitis [Fatal]
  - Abdominal pain [Fatal]
  - Oedema peripheral [Fatal]
  - Weight decreased [Recovered/Resolved]
  - Neoplasm progression [Fatal]
  - Crepitations [Fatal]
  - Haemorrhage [Fatal]
  - Lung disorder [Fatal]
  - Septic shock [Fatal]
  - Hyperkalaemia [Fatal]
  - Cholestasis [Fatal]
  - Pulmonary oedema [Fatal]
  - Decreased appetite [Unknown]
  - Pleural effusion [Fatal]
  - Skin irritation [Recovered/Resolved]
  - Renal failure [Fatal]
  - Inflammation [Fatal]
  - Hyponatraemia [Fatal]

NARRATIVE: CASE EVENT DATE: 20151115
